FAERS Safety Report 4461048-4 (Version None)
Quarter: 2004Q3

REPORT INFORMATION
  Report Type: 
  Country: None (occurrence: None)
  Receive Date: 20040928
  Receipt Date: 20040706
  Transmission Date: 20050211
  Serious: No
  Sender: FDA-Public Use
  Company Number: US-GLAXOSMITHKLINE-A0517092A

PATIENT
  Age: 71 Year
  Sex: Female

DRUGS (7)
  1. ADVAIR DISKUS 100/50 [Suspect]
     Indication: ASTHMA
     Dosage: 1PUFF TWICE PER DAY
     Route: 055
  2. ALBUTEROL [Concomitant]
  3. LIPITOR [Concomitant]
  4. ALTACE [Concomitant]
  5. VIOXX [Concomitant]
  6. ATENOLOL [Concomitant]
  7. ASPIRIN [Concomitant]

REACTIONS (7)
  - COUGH [None]
  - NASAL CONGESTION [None]
  - NASAL DISCOMFORT [None]
  - NASAL ULCER [None]
  - ORAL CANDIDIASIS [None]
  - RHINORRHOEA [None]
  - TONGUE GEOGRAPHIC [None]
